FAERS Safety Report 11574479 (Version 1)
Quarter: 2015Q3

REPORT INFORMATION
  Report Type: Spontaneous
  Country: US (occurrence: None)
  Receive Date: 20150928
  Receipt Date: 20150928
  Transmission Date: 20151125
  Serious: No
  Sender: FDA-Public Use
  Company Number: None

PATIENT
  Age: 26 Year

DRUGS (3)
  1. METAPROLOL [Concomitant]
  2. BUSPIRONE [Concomitant]
     Active Substance: BUSPIRONE HYDROCHLORIDE
  3. NEXPLANON [Suspect]
     Active Substance: ETONOGESTREL

REACTIONS (7)
  - Ventricular extrasystoles [None]
  - Anger [None]
  - Panic attack [None]
  - Depression [None]
  - Mood swings [None]
  - Aggression [None]
  - Palpitations [None]

NARRATIVE: CASE EVENT DATE: 20150701
